FAERS Safety Report 20791328 (Version 2)
Quarter: 2022Q3

REPORT INFORMATION
  Report Type: Report from Study
  Country: CA (occurrence: CA)
  Receive Date: 20220505
  Receipt Date: 20220713
  Transmission Date: 20221027
  Serious: Yes (Hospitalization, Other)
  Sender: FDA-Public Use
  Company Number: CA-BoehringerIngelheim-2021-BI-109088

PATIENT
  Age: 67 Year
  Sex: Male

DRUGS (3)
  1. OFEV [Suspect]
     Active Substance: NINTEDANIB
     Indication: Idiopathic pulmonary fibrosis
     Dosage: TAKE 1 CAPSULE (100MG) ONCE DAILY
     Route: 048
     Dates: start: 20190529, end: 20220708
  2. OFEV [Suspect]
     Active Substance: NINTEDANIB
     Route: 048
     Dates: start: 20150914
  3. OFEV [Suspect]
     Active Substance: NINTEDANIB
     Route: 048

REACTIONS (12)
  - Alcohol poisoning [Unknown]
  - Fall [Recovered/Resolved]
  - Alcoholism [Not Recovered/Not Resolved]
  - Pain [Recovered/Resolved]
  - Cataract [Recovered/Resolved]
  - Suicidal ideation [Unknown]
  - Cough [Not Recovered/Not Resolved]
  - Headache [Not Recovered/Not Resolved]
  - Insomnia [Unknown]
  - Illness [Not Recovered/Not Resolved]
  - Malaise [Unknown]
  - Lung disorder [Unknown]

NARRATIVE: CASE EVENT DATE: 20220708
